FAERS Safety Report 11614863 (Version 2)
Quarter: 2015Q4

REPORT INFORMATION
  Report Type: Spontaneous
  Country: IT (occurrence: IT)
  Receive Date: 20151009
  Receipt Date: 20151027
  Transmission Date: 20160304
  Serious: Yes (Disabling)
  Sender: FDA-Public Use
  Company Number: IT-TEVA-596540ISR

PATIENT
  Sex: Female

DRUGS (4)
  1. ATRA [Concomitant]
     Active Substance: TRETINOIN
  2. TRISENOX [Suspect]
     Active Substance: ARSENIC TRIOXIDE
     Indication: ACUTE PROMYELOCYTIC LEUKAEMIA
     Route: 065
  3. CORTISONE [Concomitant]
     Active Substance: CORTISONE\HYDROCORTISONE
  4. FLUCONAZOLO [Concomitant]
     Indication: PROPHYLAXIS

REACTIONS (4)
  - Motor dysfunction [Recovered/Resolved]
  - Walking disability [Not Recovered/Not Resolved]
  - Quadriparesis [Recovered/Resolved with Sequelae]
  - Neuropathy peripheral [Unknown]
